FAERS Safety Report 6280644-5 (Version None)
Quarter: 2009Q3

REPORT INFORMATION
  Report Type: 
  Country: None (occurrence: None)
  Receive Date: 20090724
  Receipt Date: 20081030
  Transmission Date: 20100115
  Serious: No
  Sender: FDA-Public Use
  Company Number: A0754418A

PATIENT
  Age: 60 Year
  Sex: Male

DRUGS (5)
  1. AVANDIA [Suspect]
     Route: 048
     Dates: start: 20030101, end: 20060901
  2. METFORMIN HCL [Concomitant]
  3. LOPID [Concomitant]
  4. LISINOPRIL [Concomitant]
  5. WELLBUTRIN [Concomitant]

REACTIONS (3)
  - ABASIA [None]
  - CHEST PAIN [None]
  - WEIGHT LOSS POOR [None]
